FAERS Safety Report 23560051 (Version 1)
Quarter: 2024Q1

REPORT INFORMATION
  Report Type: Spontaneous
  Country: IT (occurrence: IT)
  Receive Date: 20240223
  Receipt Date: 20240223
  Transmission Date: 20240409
  Serious: Yes (Hospitalization, Other)
  Sender: FDA-Public Use
  Company Number: None

PATIENT
  Age: 81 Year
  Sex: Male

DRUGS (2)
  1. ELIQUIS [Suspect]
     Active Substance: APIXABAN
     Indication: Atrial fibrillation
     Dosage: FREQUENCY TIME: 24 HOUR
     Route: 048
     Dates: start: 2019, end: 20240218
  2. DICLOFENAC SODIUM [Suspect]
     Active Substance: DICLOFENAC\DICLOFENAC SODIUM
     Indication: Cervicobrachial syndrome
     Dosage: FREQUENCY TIME: 24 HOUR
     Route: 048
     Dates: start: 20240214, end: 20240218

REACTIONS (3)
  - Rectal haemorrhage [Recovering/Resolving]
  - Ulcerative gastritis [Recovering/Resolving]
  - Melaena [Recovering/Resolving]

NARRATIVE: CASE EVENT DATE: 20240218
